FAERS Safety Report 5376415-4 (Version None)
Quarter: 2007Q2

REPORT INFORMATION
  Report Type: 
  Country: None (occurrence: None)
  Receive Date: 20070627
  Receipt Date: 20070627
  Transmission Date: 20071010
  Serious: Yes (Hospitalization)
  Sender: FDA-Public Use
  Company Number: None

PATIENT
  Sex: Female
  Weight: 61.3 kg

DRUGS (1)
  1. CISPLATIN [Suspect]
     Dosage: 160 MG
     Dates: end: 20070529

REACTIONS (5)
  - BLOOD POTASSIUM INCREASED [None]
  - BLOOD SODIUM DECREASED [None]
  - LABORATORY TEST ABNORMAL [None]
  - NEUTROPHIL COUNT DECREASED [None]
  - URINARY RETENTION [None]
